FAERS Safety Report 8021522-0 (Version None)
Quarter: 2012Q1

REPORT INFORMATION
  Report Type: 
  Country: None (occurrence: None)
  Receive Date: 20120104
  Receipt Date: 20111227
  Transmission Date: 20120608
  Serious: Yes (Other)
  Sender: FDA-Public Use
  Company Number: US-BAYER-2011-092911

PATIENT
  Age: 39 Year
  Sex: Female
  Weight: 62.585 kg

DRUGS (4)
  1. MIRENA [Suspect]
     Indication: DYSMENORRHOEA
  2. MIRENA [Suspect]
     Indication: MENORRHAGIA
  3. MIRENA [Suspect]
     Indication: METRORRHAGIA
     Dosage: 20 MCG/24HR, CONT
     Route: 015
     Dates: start: 20110711, end: 20111207
  4. MIRENA [Suspect]
     Indication: MENSTRUAL DISORDER

REACTIONS (3)
  - MENOMETRORRHAGIA [None]
  - DYSMENORRHOEA [None]
  - POST PROCEDURAL HAEMORRHAGE [None]
